FAERS Safety Report 15896810 (Version 2)
Quarter: 2019Q1

REPORT INFORMATION
  Report Type: Report from Study
  Country: US (occurrence: US)
  Receive Date: 20190131
  Receipt Date: 20190218
  Transmission Date: 20190417
  Serious: Yes (Death, Life-Threatening, Hospitalization, Disabling, Other)
  Sender: FDA-Public Use
  Company Number: US-GILEAD-2018-0381040

PATIENT
  Age: 65 Year
  Sex: Female
  Weight: 30.84 kg

DRUGS (7)
  1. PYRIDOXINE [Concomitant]
     Active Substance: PYRIDOXINE
  2. PEFOXAN [Concomitant]
  3. AMBRISENTAN [Suspect]
     Active Substance: AMBRISENTAN
     Indication: SCLERODERMA
  4. CORTISONE [Concomitant]
     Active Substance: CORTISONE\HYDROCORTISONE
  5. SOLU-MEDROL [Concomitant]
     Active Substance: METHYLPREDNISOLONE SODIUM SUCCINATE
  6. AMBRISENTAN [Suspect]
     Active Substance: AMBRISENTAN
     Indication: PULMONARY HYPERTENSION
     Dosage: 5 MG
     Route: 065
     Dates: start: 20140626
  7. MEROPENEM. [Concomitant]
     Active Substance: MEROPENEM

REACTIONS (5)
  - Tuberculosis [Not Recovered/Not Resolved]
  - Death [Fatal]
  - Pneumonia [Not Recovered/Not Resolved]
  - Respiratory failure [Unknown]
  - Sepsis [Not Recovered/Not Resolved]

NARRATIVE: CASE EVENT DATE: 201810
